FAERS Safety Report 5946937-3 (Version None)
Quarter: 2008Q4

REPORT INFORMATION
  Report Type: 
  Country: None (occurrence: None)
  Receive Date: 20081110
  Receipt Date: 20081015
  Transmission Date: 20090506
  Serious: Yes (Death)
  Sender: FDA-Public Use
  Company Number: BE-ASTRAZENECA-2008AC02423

PATIENT
  Age: 31393 Day
  Sex: Female
  Weight: 82 kg

DRUGS (5)
  1. CRESTOR [Suspect]
     Indication: HYPERCHOLESTEROLAEMIA
     Route: 048
     Dates: start: 20070601
  2. GLUCOPHAGE [Concomitant]
  3. LISINOPRIL [Concomitant]
  4. PLAVIX [Concomitant]
  5. VASEXTEN [Concomitant]

REACTIONS (1)
  - CEREBROVASCULAR ACCIDENT [None]
